FAERS Safety Report 6958129-X (Version None)
Quarter: 2010Q3

REPORT INFORMATION
  Report Type: 
  Country: None (occurrence: None)
  Receive Date: 20100831
  Receipt Date: 20100823
  Transmission Date: 20110219
  Serious: Yes (Death, Life-Threatening, Hospitalization, Other)
  Sender: FDA-Public Use
  Company Number: JP-GENZYME-THYM-1001738

PATIENT
  Sex: Female
  Weight: 44 kg

DRUGS (46)
  1. THYMOGLOBULIN [Suspect]
     Indication: PREMEDICATION
     Dosage: 45 MG, QD
     Route: 042
     Dates: start: 20090309, end: 20090312
  2. ACYCLOVIR SODIUM [Concomitant]
     Indication: ANTIVIRAL PROPHYLAXIS
     Dosage: UNK
     Dates: start: 20080101, end: 20090607
  3. ACYCLOVIR SODIUM [Concomitant]
     Dosage: UNK
     Dates: start: 20090709
  4. TRIMETHOPRIM + SULFAMETHOXAZOLE [Concomitant]
     Indication: PNEUMOCYSTIS JIROVECI PNEUMONIA
     Dosage: UNK
     Dates: start: 20080101, end: 20090310
  5. TRIMETHOPRIM + SULFAMETHOXAZOLE [Concomitant]
     Dosage: UNK
     Dates: start: 20090327
  6. URSODIOL [Concomitant]
     Indication: PROPHYLAXIS
     Dosage: UNK
     Dates: start: 20090303, end: 20090628
  7. ITRACONAZOLE [Concomitant]
     Indication: ANTIFUNGAL PROPHYLAXIS
     Dosage: UNK
     Dates: start: 20080101, end: 20090413
  8. ITRACONAZOLE [Concomitant]
     Dosage: UNK
     Dates: start: 20090731
  9. FAMOTIDINE [Concomitant]
     Indication: GASTRITIS PROPHYLAXIS
     Dosage: UNK
     Dates: start: 20080101, end: 20090719
  10. FAMOTIDINE [Concomitant]
     Dosage: UNK
     Dates: start: 20090730
  11. REBAMIPIDE [Concomitant]
     Indication: GASTRITIS PROPHYLAXIS
     Dosage: UNK
     Dates: start: 20080101, end: 20090719
  12. REBAMIPIDE [Concomitant]
     Dosage: UNK
     Dates: start: 20090730
  13. ANTIBIOTICS-RESISTANT LACTIC ACID BACTERIAE [Concomitant]
     Indication: PROPHYLAXIS
     Dosage: UNK
     Dates: start: 20080101, end: 20090722
  14. ZOLPIDEM [Concomitant]
     Indication: INSOMNIA
     Dosage: UNK
     Dates: start: 20080101
  15. ISONIAZID [Concomitant]
     Indication: ANTIBIOTIC PROPHYLAXIS
     Dosage: UNK
     Dates: start: 20080101
  16. CIPROFLOXACIN [Concomitant]
     Indication: ANTIBIOTIC PROPHYLAXIS
     Dosage: UNK
     Dates: start: 20090227, end: 20090312
  17. MAGNESIUM OXIDE [Concomitant]
     Indication: CONSTIPATION
     Dosage: UNK
     Dates: start: 20080101
  18. RISEDRONATE SODIUM [Concomitant]
     Indication: OSTEOPOROSIS PROPHYLAXIS
     Dosage: UNK
     Dates: start: 20080101, end: 20090327
  19. ACETAZOLAMIDE [Concomitant]
     Indication: PROPHYLAXIS
     Dosage: UNK
     Dates: start: 20090306, end: 20090324
  20. DIMETHICONE [Concomitant]
     Indication: CONSTIPATION
     Dosage: UNK
     Dates: start: 20090323
  21. CYCLOSPORINE [Concomitant]
     Indication: PROPHYLAXIS AGAINST GRAFT VERSUS HOST DISEASE
     Dosage: UNK
     Dates: start: 20090402, end: 20090703
  22. CYCLOSPORINE [Concomitant]
     Dosage: UNK
     Dates: start: 20090529, end: 20090703
  23. CYCLOSPORINE [Concomitant]
     Dosage: UNK
     Dates: start: 20090731
  24. SOYBEAN OIL [Concomitant]
     Indication: PROPHYLAXIS
     Dosage: UNK
     Dates: start: 20090314, end: 20090422
  25. SOYBEAN OIL [Concomitant]
     Dosage: UNK
     Dates: start: 20090724, end: 20090811
  26. MELPHALAN [Concomitant]
     Indication: PREMEDICATION
     Dosage: UNK
     Dates: start: 20090310, end: 20090311
  27. FLUDARABINE PHOSPHATE [Concomitant]
     Indication: PREMEDICATION
     Dosage: 41 MG, QD
     Dates: start: 20090303, end: 20090308
  28. GRANISETRON HYDROCHLORIDE [Concomitant]
     Indication: PROPHYLAXIS OF NAUSEA AND VOMITING
     Dosage: UNK
     Dates: start: 20090303, end: 20090311
  29. HYDROCORTISONE SODIUM SUCCINATE [Concomitant]
     Indication: PROPHYLAXIS
     Dosage: UNK
     Dates: start: 20090303, end: 20090306
  30. CYTARABINE [Concomitant]
     Indication: PREMEDICATION
     Dosage: UNK
     Dates: start: 20090303, end: 20090306
  31. METHYLPREDNISOLONE SODIUM SUCCINATE [Concomitant]
     Indication: PREMEDICATION
     Dosage: UNK
     Dates: start: 20090309, end: 20090406
  32. MIXED AMINO ACID CARBOHYDRATE ELECTROLYTE VITAMIN COMBINE [Concomitant]
     Indication: PROPHYLAXIS
     Dosage: UNK
     Dates: start: 20090228, end: 20090505
  33. HEPARIN SODIUM [Concomitant]
     Indication: PROPHYLAXIS
     Dosage: UNK
     Dates: start: 20090228, end: 20090316
  34. HYDROCORTISONE SODIUM SUCCINATE [Concomitant]
     Indication: PRODUCT USED FOR UNKNOWN INDICATION
     Dosage: UNK
     Dates: start: 20090313, end: 20090313
  35. HYDROXYZINE PAMOATE [Concomitant]
     Indication: PRODUCT USED FOR UNKNOWN INDICATION
     Dosage: UNK
     Dates: start: 20090313, end: 20090313
  36. HAPTOGLOBINS [Concomitant]
     Indication: PRODUCT USED FOR UNKNOWN INDICATION
     Dosage: UNK
     Dates: start: 20090313, end: 20090313
  37. CARBAZOCHROME SODIUM SULFONATE [Concomitant]
     Indication: HAEMORRHAGE PROPHYLAXIS
     Dosage: UNK
     Dates: start: 20090316
  38. GLYCERIN W [Concomitant]
     Indication: PROPHYLAXIS
     Dosage: UNK
     Dates: start: 20090402, end: 20090402
  39. TACROLIMUS [Concomitant]
     Indication: PROPHYLAXIS AGAINST GRAFT VERSUS HOST DISEASE
     Dosage: UNK
     Dates: start: 20090311, end: 20090402
  40. DALTEPARIN SODIUM [Concomitant]
     Indication: PROPHYLAXIS
     Dosage: UNK
     Dates: start: 20090307, end: 20090324
  41. OMEPRAZOLE [Concomitant]
     Indication: HAEMORRHAGE PROPHYLAXIS
     Dosage: UNK
     Dates: start: 20090719, end: 20090729
  42. DAIO-KANZO-TO [Concomitant]
     Indication: CONSTIPATION
     Dosage: UNK
     Dates: start: 20090506
  43. VALACYCLOVIR [Concomitant]
     Indication: ANTIVIRAL PROPHYLAXIS
     Dosage: UNK
     Dates: start: 20090607, end: 20090709
  44. CEFCAPENE PIVOXIL HYDROCHLORIDE [Concomitant]
     Indication: ANTIBIOTIC PROPHYLAXIS
     Dosage: UNK
     Dates: start: 20090722, end: 20090724
  45. CLOSTRIDIUM BUTYRICUM [Concomitant]
     Indication: PROPHYLAXIS
     Dosage: UNK
     Dates: start: 20090722
  46. IMMUNE GLOBULIN (HUMAN) [Concomitant]
     Indication: INFECTION PROPHYLAXIS
     Dosage: UNK
     Dates: start: 20090724, end: 20090726

REACTIONS (29)
  - ACUTE GRAFT VERSUS HOST DISEASE [None]
  - ACUTE GRAFT VERSUS HOST DISEASE IN LIVER [None]
  - ACUTE GRAFT VERSUS HOST DISEASE IN SKIN [None]
  - ALTERED STATE OF CONSCIOUSNESS [None]
  - ANAPHYLACTOID REACTION [None]
  - BLOOD LACTATE DEHYDROGENASE INCREASED [None]
  - CARDIAC TAMPONADE [None]
  - CONVULSION [None]
  - CYTOMEGALOVIRUS INFECTION [None]
  - CYTOMEGALOVIRUS TEST POSITIVE [None]
  - ELECTROLYTE IMBALANCE [None]
  - ENTEROCOLITIS [None]
  - FLUID RETENTION [None]
  - FUNGAL INFECTION [None]
  - HEPATIC MASS [None]
  - HYPERCALCAEMIA [None]
  - HYPERGLYCAEMIA [None]
  - HYPERTENSION [None]
  - HYPOGLYCAEMIA [None]
  - KLEBSIELLA SEPSIS [None]
  - LIVER DISORDER [None]
  - PANCYTOPENIA [None]
  - PERICARDIAL EFFUSION [None]
  - PSEUDOMEMBRANOUS COLITIS [None]
  - RENAL DISORDER [None]
  - THROMBOCYTOPENIA [None]
  - THROMBOTIC MICROANGIOPATHY [None]
  - TUBULOINTERSTITIAL NEPHRITIS [None]
  - VENOOCCLUSIVE LIVER DISEASE [None]
